FAERS Safety Report 6853461-2 (Version None)
Quarter: 2010Q3

REPORT INFORMATION
  Report Type: 
  Country: None (occurrence: None)
  Receive Date: 20100717
  Receipt Date: 20071207
  Transmission Date: 20110219
  Serious: No
  Sender: FDA-Public Use
  Company Number: US-PFIZER INC-2007105370

PATIENT
  Sex: Female

DRUGS (4)
  1. CHANTIX [Suspect]
     Indication: SMOKING CESSATION THERAPY
     Route: 048
     Dates: start: 20071101, end: 20071101
  2. GEODON [Concomitant]
     Indication: BIPOLAR DISORDER
  3. EFFEXOR [Concomitant]
     Indication: BIPOLAR DISORDER
  4. ATIVAN [Concomitant]

REACTIONS (1)
  - NIGHTMARE [None]
